FAERS Safety Report 12270301 (Version 1)
Quarter: 2016Q2

REPORT INFORMATION
  Report Type: Spontaneous
  Country: US (occurrence: None)
  Receive Date: 20160414
  Receipt Date: 20160414
  Transmission Date: 20160815
  Serious: Yes (Life-Threatening, Hospitalization)
  Sender: FDA-Public Use
  Company Number: None

PATIENT
  Age: 53 Year
  Sex: Male
  Weight: 74.9 kg

DRUGS (2)
  1. PRASUGREL, 10 MG [Suspect]
     Active Substance: PRASUGREL
     Indication: STENT PLACEMENT
     Route: 048
  2. ASPIRIN, 81 MG [Suspect]
     Active Substance: ASPIRIN
     Route: 048

REACTIONS (6)
  - Pain [None]
  - Seizure [None]
  - Visual impairment [None]
  - Muscle spasms [None]
  - Subdural haemorrhage [None]
  - Fall [None]

NARRATIVE: CASE EVENT DATE: 20140513
